FAERS Safety Report 9800429 (Version 2)
Quarter: 2014Q1

REPORT INFORMATION
  Report Type: Spontaneous
  Country: US (occurrence: US)
  Receive Date: 20140107
  Receipt Date: 20140122
  Transmission Date: 20141002
  Serious: Yes (Other)
  Sender: FDA-Public Use
  Company Number: US-JNJFOC-20131217054

PATIENT
  Age: 55 Year
  Sex: Male

DRUGS (2)
  1. BENADRYL ALLERGY DYE-FREE SOFT GEL [Suspect]
     Indication: ADVERSE DRUG REACTION
     Route: 048
     Dates: start: 20131226
  2. COPAXONE [Suspect]
     Indication: MULTIPLE SCLEROSIS
     Route: 065

REACTIONS (3)
  - Neuropathy peripheral [Recovering/Resolving]
  - Chills [Recovering/Resolving]
  - Expired drug administered [Unknown]
